FAERS Safety Report 22621130 (Version 1)
Quarter: 2023Q2

REPORT INFORMATION
  Report Type: Spontaneous
  Country: CN (occurrence: CN)
  Receive Date: 20230620
  Receipt Date: 20230620
  Transmission Date: 20230721
  Serious: Yes (Death)
  Sender: FDA-Public Use
  Company Number: CN-SUN PHARMACEUTICAL INDUSTRIES LTD-2023R1-395510

PATIENT
  Age: 67 Year
  Sex: Male

DRUGS (4)
  1. METHYLPREDNISOLONE [Suspect]
     Active Substance: METHYLPREDNISOLONE
     Indication: Drug eruption
     Dosage: 60 MILLIGRAM, QD
     Route: 065
  2. LORATADINE [Suspect]
     Active Substance: LORATADINE
     Indication: Drug eruption
     Dosage: UNK
     Route: 048
  3. HALOMETASONE [Suspect]
     Active Substance: HALOMETASONE
     Indication: Drug eruption
     Dosage: UNK
     Route: 061
  4. SINTILIMAB [Concomitant]
     Active Substance: SINTILIMAB
     Indication: Hepatic cancer
     Dosage: UNK
     Route: 065

REACTIONS (1)
  - Drug ineffective [Fatal]
